FAERS Safety Report 6861326-5 (Version None)
Quarter: 2010Q3

REPORT INFORMATION
  Report Type: 
  Country: None (occurrence: None)
  Receive Date: 20100720
  Receipt Date: 20100715
  Transmission Date: 20110219
  Serious: Yes (Other)
  Sender: FDA-Public Use
  Company Number: US-GILEAD-2010-0030258

PATIENT
  Sex: Female

DRUGS (11)
  1. LETAIRIS [Suspect]
     Indication: PULMONARY ARTERIAL HYPERTENSION
     Route: 048
     Dates: start: 20100420
  2. REVATIO [Concomitant]
  3. ASPIRIN [Concomitant]
  4. BENAZEPRIL-HCTZ [Concomitant]
  5. PATANASE [Concomitant]
  6. ALLEGRA [Concomitant]
  7. ACTOS [Concomitant]
  8. PRILOSEC [Concomitant]
  9. CELEBREX [Concomitant]
  10. ULTRAM [Concomitant]
  11. CALCIUM [Concomitant]

REACTIONS (2)
  - OEDEMA PERIPHERAL [None]
  - RENAL FAILURE ACUTE [None]
